FAERS Safety Report 7770420-6 (Version None)
Quarter: 2011Q3

REPORT INFORMATION
  Report Type: 
  Country: None (occurrence: None)
  Receive Date: 20110922
  Receipt Date: 20110131
  Transmission Date: 20111222
  Serious: No
  Sender: FDA-Public Use
  Company Number: US-ASTRAZENECA-2010SE01984

PATIENT
  Age: 41 Year
  Sex: Female
  Weight: 77.1 kg

DRUGS (7)
  1. SEROQUEL XR [Suspect]
     Indication: BIPOLAR DISORDER
     Route: 048
  2. SOMA [Concomitant]
     Dosage: AS REQUIRED
  3. LORTAB [Concomitant]
     Dosage: AS REQUIRED
  4. ZANTAC [Concomitant]
  5. SEROQUEL XR [Suspect]
     Route: 048
  6. IMODIUM [Concomitant]
  7. CLONOPIN [Concomitant]

REACTIONS (4)
  - WEIGHT INCREASED [None]
  - WEIGHT DECREASED [None]
  - DRUG DOSE OMISSION [None]
  - TREMOR [None]
